FAERS Safety Report 4565888-2 (Version None)
Quarter: 2005Q1

REPORT INFORMATION
  Report Type: 
  Country: None (occurrence: None)
  Receive Date: 20050131
  Receipt Date: 20050119
  Transmission Date: 20050727
  Serious: Yes (Hospitalization)
  Sender: FDA-Public Use
  Company Number: US-AMGEN-US108405

PATIENT
  Age: 55 Year
  Sex: Male

DRUGS (2)
  1. ENBREL [Suspect]
     Indication: RHEUMATOID ARTHRITIS
     Route: 058
     Dates: start: 20050104, end: 20050105
  2. KINERET [Suspect]
     Dates: end: 20041201

REACTIONS (3)
  - CHILLS [None]
  - PLEURAL EFFUSION [None]
  - PYREXIA [None]
